FAERS Safety Report 7961918-6 (Version None)
Quarter: 2011Q4

REPORT INFORMATION
  Report Type: 
  Country: None (occurrence: None)
  Receive Date: 20111207
  Receipt Date: 20111129
  Transmission Date: 20120403
  Serious: Yes (Hospitalization)
  Sender: FDA-Public Use
  Company Number: GB-ROCHE-1017480

PATIENT
  Age: 28 Year
  Sex: Female
  Weight: 53.1 kg

DRUGS (8)
  1. CALCICHEW D3 [Concomitant]
  2. METHOTREXATE SODIUM [Concomitant]
  3. TOCILIZUMAB [Suspect]
     Indication: PRODUCT USED FOR UNKNOWN INDICATION
     Route: 042
     Dates: start: 20110802, end: 20111110
  4. ALENDRONIC ACID [Concomitant]
  5. CITALOPRAM HYDROBROMIDE [Concomitant]
  6. LEVOTHYROXINE SODIUM [Concomitant]
  7. FENTANYL [Concomitant]
  8. LEFLUNOMIDE [Concomitant]

REACTIONS (2)
  - HOT FLUSH [None]
  - HYPOTENSION [None]
